FAERS Safety Report 23624026 (Version 1)
Quarter: 2024Q1

REPORT INFORMATION
  Report Type: Spontaneous
  Country: US (occurrence: US)
  Receive Date: 20240312
  Receipt Date: 20240312
  Transmission Date: 20240410
  Serious: Yes (Hospitalization)
  Sender: FDA-Public Use
  Company Number: US-BRISTOL-MYERS SQUIBB COMPANY-2024-037498

PATIENT
  Age: 70 Year
  Sex: Female
  Weight: 85.75 kg

DRUGS (2)
  1. IDHIFA [Suspect]
     Active Substance: ENASIDENIB MESYLATE
     Indication: Product used for unknown indication
  2. XOSPATA [Concomitant]
     Active Substance: GILTERITINIB
     Indication: Myeloid leukaemia

REACTIONS (2)
  - Cough [Unknown]
  - Viral infection [Unknown]

NARRATIVE: CASE EVENT DATE: 20240201
